FAERS Safety Report 12807940 (Version 1)
Quarter: 2016Q4

REPORT INFORMATION
  Report Type: Spontaneous
  Country: CN (occurrence: CN)
  Receive Date: 20161004
  Receipt Date: 20161004
  Transmission Date: 20170207
  Serious: Yes (Hospitalization)
  Sender: FDA-Public Use
  Company Number: CN-BAYER-2016-190162

PATIENT
  Age: 67 Year
  Sex: Male

DRUGS (3)
  1. IOPROMIDE [Suspect]
     Active Substance: IOPROMIDE
     Indication: NEOPLASM
  2. IOPROMIDE [Suspect]
     Active Substance: IOPROMIDE
     Indication: COMPUTERISED TOMOGRAM ABDOMEN
  3. IOPROMIDE [Suspect]
     Active Substance: IOPROMIDE
     Indication: COMPUTERISED TOMOGRAM THORAX
     Dosage: UNK UNK, ONCE
     Route: 042
     Dates: start: 20160928, end: 20160928

REACTIONS (4)
  - Brain death [Not Recovered/Not Resolved]
  - Shock [None]
  - Loss of consciousness [None]
  - Discomfort [None]

NARRATIVE: CASE EVENT DATE: 20160928
